FAERS Safety Report 9118279 (Version 3)
Quarter: 2013Q4

REPORT INFORMATION
  Report Type: Spontaneous
  Country: US (occurrence: US)
  Receive Date: 20130125
  Receipt Date: 20131028
  Transmission Date: 20140711
  Serious: Yes (Other)
  Sender: FDA-Public Use
  Company Number: US-RB-045837-12

PATIENT
  Age: 0 None
  Sex: Female

DRUGS (6)
  1. SUBOXONE TABLET [Suspect]
     Indication: DRUG DEPENDENCE
     Dosage: DOSING DETAILS UNKNOWN
     Route: 064
     Dates: start: 2011, end: 201111
  2. GENERIC BUPRENORPHINE [Suspect]
     Indication: DRUG DEPENDENCE
     Dosage: 2 1/2 TABS DAILY
     Route: 064
     Dates: start: 201111, end: 20120621
  3. NICOTINE [Suspect]
     Indication: PRODUCT USED FOR UNKNOWN INDICATION
     Dosage: 20 CIGARETTES PER DAY
     Route: 064
     Dates: start: 20111005, end: 20120621
  4. OXYCONTIN [Suspect]
     Indication: DRUG DEPENDENCE
     Dosage: 80 MG ONCE A DAY ON THREE OCCASIONS
     Route: 064
  5. PERCOCET [Suspect]
     Indication: DRUG DEPENDENCE
     Dosage: 30 MG ONCE A DAY ON TWO OCCASIONS
     Route: 064
  6. SUBUTEX [Suspect]
     Indication: DRUG DEPENDENCE
     Route: 064
     Dates: start: 201111, end: 20120621

REACTIONS (12)
  - Foetal exposure during pregnancy [Recovered/Resolved]
  - Low birth weight baby [Recovered/Resolved]
  - Body temperature decreased [Recovered/Resolved]
  - Drug withdrawal syndrome neonatal [Recovered/Resolved]
  - Dyskinesia [Recovered/Resolved]
  - Tremor neonatal [Recovered/Resolved]
  - Infantile spitting up [Recovered/Resolved]
  - Weight decrease neonatal [Recovered/Resolved]
  - Food allergy [Recovered/Resolved]
  - Dyspepsia [Recovered/Resolved]
  - Eating disorder [Recovered/Resolved]
  - Flatulence [Recovered/Resolved]
